FAERS Safety Report 8458290-4 (Version None)
Quarter: 2012Q2

REPORT INFORMATION
  Report Type: 
  Country: None (occurrence: None)
  Receive Date: 20120615
  Receipt Date: 20120604
  Transmission Date: 20120825
  Serious: Yes (Hospitalization, Other)
  Sender: FDA-Public Use
  Company Number: 2012P1037927

PATIENT
  Age: 54 Year
  Sex: Male

DRUGS (1)
  1. CLONIDINE [Suspect]
     Indication: BACK PAIN
     Dosage: 43 UG, QD, INTH
     Route: 037

REACTIONS (3)
  - LOSS OF CONSCIOUSNESS [None]
  - HYPERTENSION [None]
  - ACCIDENTAL OVERDOSE [None]
